FAERS Safety Report 9995816 (Version 2)
Quarter: 2014Q2

REPORT INFORMATION
  Report Type: Spontaneous
  Country: US (occurrence: US)
  Receive Date: 20140311
  Receipt Date: 20140422
  Transmission Date: 20141212
  Serious: No
  Sender: FDA-Public Use
  Company Number: US-TEVA-467673USA

PATIENT
  Age: 32 Year
  Sex: Female
  Weight: 59.02 kg

DRUGS (2)
  1. PARAGARD 380A [Suspect]
     Indication: CONTRACEPTION
     Route: 015
     Dates: start: 20140129, end: 20140214
  2. DEPO PROVERA [Concomitant]
     Indication: CONTRACEPTION

REACTIONS (2)
  - Dyspareunia [Recovered/Resolved]
  - Medical device complication [Recovered/Resolved]
